FAERS Safety Report 5430830-9 (Version None)
Quarter: 2007Q3

REPORT INFORMATION
  Report Type: 
  Country: None (occurrence: None)
  Receive Date: 20070830
  Receipt Date: 20061206
  Transmission Date: 20080115
  Serious: No
  Sender: FDA-Public Use
  Company Number: A0630635A

PATIENT
  Sex: Male

DRUGS (4)
  1. WELLBUTRIN XL [Suspect]
     Indication: DEPRESSION
     Route: 048
  2. METFORMIN HCL [Concomitant]
  3. HYDROCHLOROTHIAZIDE [Concomitant]
  4. ANTI-CHOLESTEROL MEDICATION [Concomitant]

REACTIONS (1)
  - RASH [None]
